FAERS Safety Report 19846803 (Version 1)
Quarter: 2021Q3

REPORT INFORMATION
  Report Type: Spontaneous
  Country: US (occurrence: US)
  Receive Date: 20210917
  Receipt Date: 20210917
  Transmission Date: 20211014
  Serious: No
  Sender: FDA-Public Use
  Company Number: US-RECKITT BENCKISER HEALTHCARE INT LIMITED-RB-83380-2021

PATIENT
  Age: 81 Year
  Sex: Female

DRUGS (1)
  1. MUCINEX MAXIMUM STRENGTH [Suspect]
     Active Substance: GUAIFENESIN
     Indication: COVID-19
     Dosage: 2400 MILLIGRAM, SINGLE
     Route: 065
     Dates: start: 202101

REACTIONS (3)
  - Incorrect product administration duration [Unknown]
  - Product use in unapproved indication [Unknown]
  - Accidental overdose [Unknown]
